FAERS Safety Report 6103729-2 (Version None)
Quarter: 2009Q1

REPORT INFORMATION
  Report Type: 
  Country: None (occurrence: None)
  Receive Date: 20090305
  Receipt Date: 20090220
  Transmission Date: 20090719
  Serious: Yes (Other)
  Sender: FDA-Public Use
  Company Number: PHHY2009BR06096

PATIENT
  Age: 37 Year
  Sex: Male

DRUGS (1)
  1. CATAFLAM [Suspect]
     Indication: BONE PAIN

REACTIONS (1)
  - SWELLING FACE [None]
